FAERS Safety Report 6585376-1 (Version None)
Quarter: 2010Q1

REPORT INFORMATION
  Report Type: 
  Country: None (occurrence: None)
  Receive Date: 20100201
  Receipt Date: 20090212
  Transmission Date: 20100710
  Serious: Yes (Other)
  Sender: FDA-Public Use
  Company Number: 8042876

PATIENT
  Age: 30 Year
  Sex: Male

DRUGS (4)
  1. LEVETIRACETAM [Suspect]
     Indication: PARTIAL SEIZURES
     Dosage: 500 MG BID ; 1250 MG, 250 IN THE MORNING 1000MG IN THE EVENING DOSE FREQ.: DAILY
  2. LEVETIRACETAM [Suspect]
     Indication: PARTIAL SEIZURES
     Dosage: 500 MG BID ; 1250 MG, 250 IN THE MORNING 1000MG IN THE EVENING DOSE FREQ.: DAILY
  3. VALPROIC ACID [Concomitant]
  4. GABAPENTIN [Concomitant]

REACTIONS (2)
  - IRRITABILITY [None]
  - SUICIDAL IDEATION [None]
